APPROVED DRUG PRODUCT: TAZAROTENE
Active Ingredient: TAZAROTENE
Strength: 0.05%
Dosage Form/Route: CREAM;TOPICAL
Application: A217075 | Product #001 | TE Code: AB
Applicant: PADAGIS ISRAEL PHARMACEUTICALS LTD
Approved: Jul 15, 2024 | RLD: No | RS: No | Type: RX